FAERS Safety Report 9171884 (Version 3)
Quarter: 2013Q2

REPORT INFORMATION
  Report Type: Spontaneous
  Country: US (occurrence: US)
  Receive Date: 20130319
  Receipt Date: 20130405
  Transmission Date: 20140414
  Serious: Yes (Hospitalization, Other)
  Sender: FDA-Public Use
  Company Number: US-PFIZER INC-2013086277

PATIENT
  Age: 82 Year
  Sex: Male

DRUGS (9)
  1. SUNITINIB MALATE [Suspect]
     Indication: RENAL CELL CARCINOMA
     Dosage: 50 MG, 1X/DAY (EVERY NIGHT FOR 14 DAYS, WITH 7-DAY BREAKS BETWEEN CYCLES)
     Route: 065
  2. DILTIAZEM HCL [Interacting]
     Dosage: UNK
     Route: 065
  3. COLCHICINE [Interacting]
     Indication: GOUT
     Dosage: 0.6 MG DAILY
  4. COLCHICINE [Interacting]
     Dosage: 4.8 MG, 1X/DAY
  5. COLCHICINE [Interacting]
     Dosage: SIX TABLETS DAILY FOR 2 DAYS
  6. COLCHICINE [Interacting]
     Dosage: ONE TABLET ON THE DAY OF PRESENTATION
  7. FUROSEMIDE [Concomitant]
     Dosage: UNK
  8. LEVOTHYROXINE [Concomitant]
     Dosage: UNK
  9. RABEPRAZOLE [Concomitant]
     Dosage: UNK

REACTIONS (27)
  - Drug interaction [Unknown]
  - Overdose [Unknown]
  - Toxicity to various agents [Unknown]
  - Cardiac failure acute [Unknown]
  - Troponin increased [Unknown]
  - Chest pain [Unknown]
  - Diarrhoea [Unknown]
  - Dyspnoea [Unknown]
  - Ejection fraction decreased [Unknown]
  - Circulatory collapse [Unknown]
  - Metabolic acidosis [Unknown]
  - Pneumonia [Unknown]
  - Hypotension [Unknown]
  - Pyrexia [Unknown]
  - Leukopenia [Unknown]
  - Anaemia [Unknown]
  - Spur cell anaemia [Unknown]
  - Hypokalaemia [Unknown]
  - Hypomagnesaemia [Unknown]
  - Thrombocytopenia [Unknown]
  - Gout [None]
  - Coronary artery stenosis [None]
  - White blood cell disorder [None]
  - Shift to the left [None]
  - Bandaemia [None]
  - Neutrophil toxic granulation present [None]
  - Red blood cell burr cells present [None]
